FAERS Safety Report 10600146 (Version 1)
Quarter: 2014Q4

REPORT INFORMATION
  Report Type: Spontaneous
  Country: VN (occurrence: VN)
  Receive Date: 20141122
  Receipt Date: 20141122
  Transmission Date: 20150529
  Serious: Yes (Other)
  Sender: FDA-Public Use
  Company Number: VN-ROCHE-1494079

PATIENT

DRUGS (5)
  1. CALCIUM FOLINATE [Suspect]
     Active Substance: LEUCOVORIN CALCIUM
     Indication: COLORECTAL CANCER METASTATIC
     Dosage: DAY1,2 + 15,16 OF A 4 WEEK CYCLE, INFUSION IN 2 HR
     Route: 041
  2. 5-FLUOROURACIL [Suspect]
     Active Substance: FLUOROURACIL
     Indication: COLORECTAL CANCER METASTATIC
     Dosage: DAY1,2 + 15,16 OF A 4 WEEK CYCLE, INJECTION IN 15^
     Route: 040
  3. AVASTIN [Suspect]
     Active Substance: BEVACIZUMAB
     Indication: COLORECTAL CANCER METASTATIC
     Dosage: DAY 1 AND DAY 15 OF A 4 WEEK CYCLE
     Route: 041
  4. 5-FLUOROURACIL [Suspect]
     Active Substance: FLUOROURACIL
     Dosage: DAY1,2 + 15,16 OF A 4 WK CYCLE, INFUSION IN 22 HR
     Route: 041
  5. OXALIPLATIN. [Suspect]
     Active Substance: OXALIPLATIN
     Indication: COLORECTAL CANCER METASTATIC
     Dosage: DAY 1 + 15 OF A 4 WEEK CYCLE, INFUSION IN 2 HOURS
     Route: 041

REACTIONS (7)
  - Hypertension [Unknown]
  - Neuropathy peripheral [Unknown]
  - Anaemia [Unknown]
  - Thrombocytopenia [Unknown]
  - Diarrhoea [Unknown]
  - Neutropenia [Unknown]
  - Haemorrhage [Recovered/Resolved]
